FAERS Safety Report 16675422 (Version 9)
Quarter: 2020Q2

REPORT INFORMATION
  Report Type: Spontaneous
  Country: PT (occurrence: PT)
  Receive Date: 20190806
  Receipt Date: 20200623
  Transmission Date: 20200713
  Serious: Yes (Life-Threatening, Hospitalization, Other)
  Sender: FDA-Public Use
  Company Number: PHHY2019PT181517

PATIENT
  Age: 17 Year
  Sex: Female

DRUGS (22)
  1. MIDAZOLAM. [Concomitant]
     Active Substance: MIDAZOLAM
     Indication: PARTIAL SEIZURES
  2. ATROPINE. [Suspect]
     Active Substance: ATROPINE
     Indication: CARDIO-RESPIRATORY ARREST
     Dosage: UNK
     Route: 065
  3. PHENYTOIN. [Concomitant]
     Active Substance: PHENYTOIN
     Indication: GENERALISED TONIC-CLONIC SEIZURE
     Dosage: UNK
     Route: 065
  4. SODIUM BICARBONATE. [Suspect]
     Active Substance: SODIUM BICARBONATE
     Indication: CARDIO-RESPIRATORY ARREST
     Dosage: 0.6 G/KG, Z (PER MIN)
     Route: 065
  5. ADRENALINE TARTRATE [Concomitant]
     Active Substance: EPINEPHRINE BITARTRATE
     Indication: CARDIOVASCULAR DISORDER
     Dosage: UNK
     Route: 065
  6. IBUPROFEN. [Suspect]
     Active Substance: IBUPROFEN
     Indication: TOXICITY TO VARIOUS AGENTS
     Dosage: 1.5 G, TOTAL
     Route: 048
  7. ATROPINE. [Suspect]
     Active Substance: ATROPINE
     Indication: CARDIOVASCULAR DISORDER
  8. SODIUM BICARBONATE. [Suspect]
     Active Substance: SODIUM BICARBONATE
     Indication: METABOLIC ACIDOSIS
     Dosage: 1 MEQ, 1 MEQ/KG/H
     Route: 042
  9. NORADRENALINE [Concomitant]
     Active Substance: NOREPINEPHRINE
     Indication: CARDIAC ARREST
     Dosage: 0.1 UG/KG/MIN
     Route: 065
  10. PROPAFENONE. [Interacting]
     Active Substance: PROPAFENONE
     Indication: POISONING DELIBERATE
  11. DOPAMINE [Suspect]
     Active Substance: DOPAMINE HYDROCHLORIDE
     Indication: CARDIAC ARREST
     Dosage: 10 UG/KG, 10 ?G/KG/ MIN
     Route: 065
  12. CHARCOAL ACTIVATED [Concomitant]
     Active Substance: ACTIVATED CHARCOAL
     Indication: INTENTIONAL OVERDOSE
     Dosage: 50 G
     Route: 065
  13. IBUPROFEN. [Interacting]
     Active Substance: IBUPROFEN
     Indication: POISONING DELIBERATE
  14. DOPAMINE [Suspect]
     Active Substance: DOPAMINE HYDROCHLORIDE
     Indication: CARDIOVASCULAR DISORDER
     Dosage: UPTO 7.5 G/KG, Z (PER MIN)
     Route: 065
  15. ADRENALINE [Suspect]
     Active Substance: EPINEPHRINE
     Indication: CARDIO-RESPIRATORY ARREST
     Dosage: 0.6 G/KG, Z (PER MIN)
     Route: 065
  16. PROPAFENONE. [Interacting]
     Active Substance: PROPAFENONE
     Indication: TOXICITY TO VARIOUS AGENTS
     Dosage: 6 G
     Route: 048
  17. MIDAZOLAM. [Concomitant]
     Active Substance: MIDAZOLAM
     Indication: GENERALISED TONIC-CLONIC SEIZURE
     Dosage: UNK
     Route: 041
  18. NORADRENALINE [Concomitant]
     Active Substance: NOREPINEPHRINE
     Indication: CARDIOVASCULAR DISORDER
  19. DOPAMINE [Suspect]
     Active Substance: DOPAMINE HYDROCHLORIDE
     Indication: HAEMODYNAMIC INSTABILITY
  20. ADRENALINE [Suspect]
     Active Substance: EPINEPHRINE
     Indication: CARDIAC ARREST
     Dosage: UNK, 7.5 UG/KG/MIN
     Route: 065
  21. MIDAZOLAM. [Concomitant]
     Active Substance: MIDAZOLAM
     Indication: SEIZURE
  22. PHENYTOIN. [Concomitant]
     Active Substance: PHENYTOIN
     Indication: SEIZURE

REACTIONS (34)
  - Diastolic dysfunction [Recovered/Resolved]
  - Alanine aminotransferase increased [Recovered/Resolved]
  - Troponin I increased [Recovered/Resolved]
  - Drug interaction [Recovered/Resolved]
  - Coma scale abnormal [Recovered/Resolved]
  - Renal injury [Recovered/Resolved]
  - Partial seizures [Recovered/Resolved]
  - Toxicity to various agents [Recovered/Resolved]
  - Systolic dysfunction [Recovered/Resolved]
  - Myocardial necrosis marker increased [Recovered/Resolved]
  - Overdose [Recovered/Resolved]
  - Metabolic acidosis [Recovered/Resolved]
  - Poor peripheral circulation [Recovered/Resolved]
  - Seizure [Recovered/Resolved]
  - Generalised tonic-clonic seizure [Recovered/Resolved]
  - pH body fluid abnormal [Recovered/Resolved]
  - Cardiac assistance device user [Recovered/Resolved]
  - Cardiac arrest [Recovered/Resolved]
  - Cardiovascular disorder [Recovered/Resolved]
  - Therapy non-responder [Unknown]
  - Intentional overdose [Recovered/Resolved]
  - Acute kidney injury [Recovered/Resolved]
  - Cardiac failure [Recovered/Resolved]
  - Sinus bradycardia [Recovered/Resolved]
  - Haemodynamic instability [Recovered/Resolved]
  - Shock [Recovered/Resolved]
  - Cardio-respiratory arrest [Recovered/Resolved]
  - Bradycardia [Recovered/Resolved]
  - Coma [Recovered/Resolved]
  - Cardiogenic shock [Recovered/Resolved]
  - N-terminal prohormone brain natriuretic peptide [Recovered/Resolved]
  - Ischaemic hepatitis [Recovered/Resolved]
  - Myocardial ischaemia [Recovered/Resolved]
  - Enzyme induction [Unknown]
